FAERS Safety Report 13306181 (Version 2)
Quarter: 2017Q2

REPORT INFORMATION
  Report Type: Report from Study
  Country: US (occurrence: US)
  Receive Date: 20170308
  Receipt Date: 20170524
  Transmission Date: 20170830
  Serious: No
  Sender: FDA-Public Use
  Company Number: US-009507513-1702USA007374

PATIENT
  Age: 56 Year
  Sex: Male

DRUGS (5)
  1. CRESTOR [Concomitant]
     Active Substance: ROSUVASTATIN CALCIUM
  2. KEYTRUDA [Suspect]
     Active Substance: PEMBROLIZUMAB
     Indication: METASTASIS
     Dosage: UNK
     Route: 042
  3. PANTOPRAZOLE [Concomitant]
     Active Substance: PANTOPRAZOLE
  4. METOPROLOL. [Concomitant]
     Active Substance: METOPROLOL
  5. KEYTRUDA [Suspect]
     Active Substance: PEMBROLIZUMAB
     Indication: MALIGNANT MELANOMA
     Dosage: UNK, ONCE EVERY THREE WEEKS; ROUTE REPORTED AS INFUSION
     Dates: start: 20160108, end: 20170208

REACTIONS (3)
  - Blood thyroid stimulating hormone decreased [Recovered/Resolved]
  - Fatigue [Recovered/Resolved]
  - Cough [Unknown]

NARRATIVE: CASE EVENT DATE: 20170505
